FAERS Safety Report 6888510-9 (Version None)
Quarter: 2010Q3

REPORT INFORMATION
  Report Type: 
  Country: None (occurrence: None)
  Receive Date: 20100730
  Receipt Date: 20100719
  Transmission Date: 20110219
  Serious: Yes (Other)
  Sender: FDA-Public Use
  Company Number: PHHY2010US47914

PATIENT

DRUGS (1)
  1. RECLAST [Suspect]
     Dosage: 5 MG, ONCE A YEAR
     Route: 042

REACTIONS (2)
  - GASTROINTESTINAL PAIN [None]
  - INFLUENZA LIKE ILLNESS [None]
